FAERS Safety Report 21368944 (Version 2)
Quarter: 2022Q3

REPORT INFORMATION
  Report Type: Spontaneous
  Country: JP (occurrence: JP)
  Receive Date: 20220923
  Receipt Date: 20220926
  Transmission Date: 20221026
  Serious: Yes (Life-Threatening, Hospitalization, Disabling)
  Sender: FDA-Public Use
  Company Number: JP-ABBVIE-22K-087-4402419-00

PATIENT
  Age: 67 Year
  Sex: Female
  Weight: 48 kg

DRUGS (4)
  1. HUMIRA [Suspect]
     Active Substance: ADALIMUMAB
     Indication: Pyoderma gangrenosum
     Route: 058
     Dates: start: 20201210, end: 20210311
  2. PREDONINE [Suspect]
     Active Substance: PREDNISOLONE
     Indication: Pyoderma gangrenosum
     Route: 048
     Dates: start: 20200908
  3. NEORAL [Suspect]
     Active Substance: CYCLOSPORINE
     Indication: Pyoderma gangrenosum
     Route: 048
     Dates: start: 20210120, end: 20210218
  4. HUMAN NORMAL IMMUNOGLOBULINE [Concomitant]
     Indication: Pyoderma gangrenosum
     Dosage: POLYETHYLENE GLYCOL TREATED HUMAN NORMAL IMMUNOGLOBULIN
     Route: 042
     Dates: start: 20210510, end: 20210514

REACTIONS (3)
  - Pseudomonas infection [Recovered/Resolved with Sequelae]
  - Staphylococcal infection [Recovered/Resolved with Sequelae]
  - Cachexia [Unknown]

NARRATIVE: CASE EVENT DATE: 20200101
